FAERS Safety Report 8820863 (Version 6)
Quarter: 2015Q2

REPORT INFORMATION
  Report Type: Report from Study
  Country: US (occurrence: US)
  Receive Date: 20121002
  Receipt Date: 20150504
  Transmission Date: 20150821
  Serious: Yes (Other)
  Sender: FDA-Public Use
  Company Number: US-JNJFOC-20120912651

PATIENT
  Age: 73 Year
  Sex: Male

DRUGS (2)
  1. LOCAL HAEMOSTATICS [Concomitant]
     Active Substance: UNSPECIFIED INGREDIENT
     Indication: HAEMOSTASIS
     Route: 050
     Dates: start: 20120731, end: 20120731
  2. EVICEL [Suspect]
     Active Substance: FIBRINOGEN HUMAN\THROMBIN HUMAN
     Indication: HAEMOSTASIS
     Route: 050
     Dates: start: 20120731, end: 20120731

REACTIONS (2)
  - Off label use [Recovered/Resolved]
  - Air embolism [Recovered/Resolved]

NARRATIVE: CASE EVENT DATE: 20120731
